FAERS Safety Report 5651489-1 (Version None)
Quarter: 2008Q1

REPORT INFORMATION
  Report Type: 
  Country: None (occurrence: None)
  Receive Date: 20080131
  Receipt Date: 20071024
  Transmission Date: 20080703
  Serious: No
  Sender: FDA-Public Use
  Company Number: US200710006396

PATIENT
  Age: 58 Year
  Sex: Male

DRUGS (2)
  1. BYETTA [Suspect]
     Dosage: 10 UG, SUBCUTANEOUS SUBCUTANEOUS
     Route: 058
  2. BYETTA [Suspect]

REACTIONS (2)
  - INCORRECT DOSE ADMINISTERED [None]
  - INTERCEPTED DRUG ADMINISTRATION ERROR [None]
